FAERS Safety Report 22519356 (Version 1)
Quarter: 2023Q2

REPORT INFORMATION
  Report Type: Other
  Country: EG (occurrence: EG)
  Receive Date: 20230605
  Receipt Date: 20230605
  Transmission Date: 20230721
  Serious: Yes (Other)
  Sender: FDA-Public Use
  Company Number: EG-002147023-NVSC2023EG123875

PATIENT
  Sex: Female

DRUGS (7)
  1. LUCENTIS [Suspect]
     Active Substance: RANIBIZUMAB
     Indication: Age-related macular degeneration
     Dosage: UNK (STARTED IN BOTH EYES)
     Route: 050
     Dates: start: 20220607
  2. LUCENTIS [Suspect]
     Active Substance: RANIBIZUMAB
     Dosage: UNK (STOPPED IN LEFT EYE)
     Route: 050
     Dates: end: 20221115
  3. LUCENTIS [Suspect]
     Active Substance: RANIBIZUMAB
     Dosage: UNK (STOPPED IN THE RIGHT EYE)
     Route: 050
     Dates: end: 20230511
  4. ATORVASTATIN CALCIUM [Concomitant]
     Active Substance: ATORVASTATIN CALCIUM
     Indication: Obesity
     Dosage: 1 DOSAGE FORM, QD (STARTED SINCE 30 YEARS)
  5. DOROFEN [Concomitant]
     Indication: Osteoarthritis
     Dosage: UNK (STARTED SINCE 10 YEARS, ONE OR TWO TAB)
  6. FEXOFENADINE [Concomitant]
     Active Substance: FEXOFENADINE HYDROCHLORIDE
     Indication: Hypersensitivity
     Dosage: 1 DOSAGE FORM, PRN (STARTED MORE THAN 10 YEARS AGO)
  7. GLUCOPHAGE [Concomitant]
     Active Substance: METFORMIN HYDROCHLORIDE
     Indication: Diabetes mellitus
     Dosage: 1 DOSAGE FORM, QD (STARTED SINCE 2 YEARS AGO)

REACTIONS (5)
  - Macular oedema [Recovered/Resolved]
  - Visual impairment [Recovered/Resolved]
  - Nasopharyngitis [Recovered/Resolved]
  - Cough [Recovered/Resolved]
  - Off label use [Unknown]

NARRATIVE: CASE EVENT DATE: 20230401
